FAERS Safety Report 6037726-2 (Version None)
Quarter: 2009Q1

REPORT INFORMATION
  Report Type: 
  Country: None (occurrence: None)
  Receive Date: 20090113
  Receipt Date: 20090105
  Transmission Date: 20090719
  Serious: Yes (Hospitalization)
  Sender: FDA-Public Use
  Company Number: 230109K09USA

PATIENT
  Age: 54 Year
  Sex: Female
  Weight: 59 kg

DRUGS (9)
  1. REBIF [Suspect]
     Indication: MULTIPLE SCLEROSIS
     Dosage: 44 MCG, 3 IN 1 WEEKS, SUBCUTANEOUS
     Route: 058
     Dates: start: 20040402, end: 20080801
  2. BLOOD PRESSURE MEDICATION (ANTIHYPERTENSIVES) [Concomitant]
  3. ANTIDEPRESSANTS (ANTIDEPRESSANTS) [Concomitant]
  4. NEURONTIN [Concomitant]
  5. TOPAMAX [Concomitant]
  6. ARICEPT [Concomitant]
  7. CONCERTA [Concomitant]
  8. NASAL SPRAY (OXYMETAZOLINE HYDROCHLORIDE) [Concomitant]
  9. POTASSIUM POTASSIUM /00031401/) [Concomitant]

REACTIONS (12)
  - BLOOD POTASSIUM DECREASED [None]
  - DIARRHOEA [None]
  - ENDOSCOPY ABNORMAL [None]
  - ERYTHEMA [None]
  - FUNGAL INFECTION [None]
  - HAEMORRHAGE [None]
  - LOSS OF CONSCIOUSNESS [None]
  - OEDEMA PERIPHERAL [None]
  - PAIN IN EXTREMITY [None]
  - PYREXIA [None]
  - RASH [None]
  - RENAL FAILURE [None]
